APPROVED DRUG PRODUCT: ACEBUTOLOL HYDROCHLORIDE
Active Ingredient: ACEBUTOLOL HYDROCHLORIDE
Strength: EQ 200MG BASE
Dosage Form/Route: CAPSULE;ORAL
Application: A074007 | Product #001 | TE Code: AB
Applicant: ANI PHARMACEUTICALS INC
Approved: Oct 18, 1995 | RLD: No | RS: No | Type: RX